FAERS Safety Report 5783003-4 (Version None)
Quarter: 2008Q2

REPORT INFORMATION
  Report Type: 
  Country: None (occurrence: None)
  Receive Date: 20080624
  Receipt Date: 20080617
  Transmission Date: 20081010
  Serious: Yes (Death, Life-Threatening, Hospitalization)
  Sender: FDA-Public Use
  Company Number: US-GENENTECH-247688

PATIENT
  Sex: Male
  Weight: 63.265 kg

DRUGS (21)
  1. BEVACIZUMAB [Suspect]
     Indication: COLORECTAL CANCER METASTATIC
     Dosage: 5 MG/KG, DAYS 1+15
     Route: 042
     Dates: start: 20070321
  2. CETUXIMAB [Suspect]
     Indication: COLORECTAL CANCER METASTATIC
     Dosage: 250 MG/M2, DAY 1, 8, 15 AND 22 OF EACH CYCLE
     Route: 042
     Dates: start: 20070321
  3. LEUCOVORIN CALCIUM [Suspect]
     Indication: COLORECTAL CANCER METASTATIC
     Dosage: 400 UNK, DAYS 1+15
     Route: 042
     Dates: start: 20070321
  4. FLUOROURACIL [Suspect]
     Indication: COLORECTAL CANCER METASTATIC
     Dosage: 400 MG/M2, DAYS 1+15
     Route: 040
     Dates: start: 20070321
  5. FLUOROURACIL [Suspect]
     Dosage: 200 MG/M2, DAYS 1+15
     Route: 042
  6. COMPAZINE [Concomitant]
     Indication: DRUG USE FOR UNKNOWN INDICATION
     Dosage: 10 MG, PRN
     Route: 048
     Dates: start: 20070321
  7. AMBIEN [Concomitant]
     Indication: INSOMNIA
     Dosage: 10 MG, QHS
     Route: 048
     Dates: start: 20070718
  8. ALDACTONE [Concomitant]
     Indication: DRUG USE FOR UNKNOWN INDICATION
     Dosage: 25 MG, PRN
     Route: 048
     Dates: start: 20070404
  9. KLOR-CON [Concomitant]
     Indication: DRUG USE FOR UNKNOWN INDICATION
     Dosage: 20 MEQ, QD
     Route: 048
     Dates: start: 20070712
  10. MEGACE [Concomitant]
     Indication: DRUG USE FOR UNKNOWN INDICATION
     Dates: start: 20070411
  11. ENULOSE [Concomitant]
     Indication: DRUG USE FOR UNKNOWN INDICATION
  12. SODIUM PHOSPHATES [Concomitant]
     Indication: DRUG USE FOR UNKNOWN INDICATION
  13. MAG-OX [Concomitant]
     Indication: DRUG USE FOR UNKNOWN INDICATION
     Dosage: 400 MG, QD
     Route: 048
     Dates: start: 20070808
  14. LORTAB [Concomitant]
     Indication: DRUG USE FOR UNKNOWN INDICATION
     Dates: start: 20070321
  15. TOBRADEX [Concomitant]
     Indication: DRUG USE FOR UNKNOWN INDICATION
  16. CITRO-MAG [Concomitant]
     Indication: DRUG USE FOR UNKNOWN INDICATION
  17. ATIVAN [Concomitant]
     Indication: ANXIETY
     Dates: start: 20070321
  18. REMERON [Concomitant]
     Indication: DRUG USE FOR UNKNOWN INDICATION
     Dosage: 15 MG, QHS
     Route: 048
     Dates: start: 20070529
  19. IMODIUM [Concomitant]
     Indication: DRUG USE FOR UNKNOWN INDICATION
  20. HYDROCODONE [Concomitant]
     Indication: PAIN
     Dates: start: 20070321
  21. TOBRAMYCIN + DEXAMETHASONE EYE DROPS [Concomitant]
     Indication: LACRIMATION INCREASED
     Dosage: 1 GTT, BID
     Dates: start: 20070716

REACTIONS (5)
  - BLOOD ALBUMIN DECREASED [None]
  - BLOOD CALCIUM DECREASED [None]
  - BLOOD POTASSIUM DECREASED [None]
  - COLITIS ISCHAEMIC [None]
  - PROTEIN TOTAL DECREASED [None]
